FAERS Safety Report 7965140-9 (Version None)
Quarter: 2011Q4

REPORT INFORMATION
  Report Type: 
  Country: None (occurrence: None)
  Receive Date: 20111208
  Receipt Date: 20111101
  Transmission Date: 20120403
  Serious: No
  Sender: FDA-Public Use
  Company Number: US-BAYER-2011-107008

PATIENT
  Age: 84 Year
  Sex: Female
  Weight: 58 kg

DRUGS (2)
  1. NAPROXEN (ALEVE) [Suspect]
     Indication: ANALGESIC THERAPY
     Dosage: UNK, QD
     Route: 048
     Dates: start: 20111027, end: 20111028
  2. THYROMISON [Concomitant]

REACTIONS (4)
  - CHROMATURIA [None]
  - FLATULENCE [None]
  - ABDOMINAL PAIN UPPER [None]
  - DIARRHOEA [None]
